FAERS Safety Report 5571129-X (Version None)
Quarter: 2007Q4

REPORT INFORMATION
  Report Type: 
  Country: None (occurrence: None)
  Receive Date: 20071221
  Receipt Date: 20061102
  Transmission Date: 20080405
  Serious: No
  Sender: FDA-Public Use
  Company Number: A0626029A

PATIENT
  Age: 43 Year
  Sex: Female

DRUGS (2)
  1. FLONASE [Suspect]
     Indication: INFLAMMATION
     Dosage: 2SPR TWICE PER DAY
     Route: 045
     Dates: start: 20061101
  2. IBUPROFEN [Concomitant]

REACTIONS (2)
  - APHONIA [None]
  - PRURITUS [None]
